FAERS Safety Report 8605097-0 (Version None)
Quarter: 2012Q3

REPORT INFORMATION
  Report Type: 
  Country: None (occurrence: None)
  Receive Date: 20120808
  Receipt Date: 20120808
  Transmission Date: 20120928
  Serious: Yes (Hospitalization)
  Sender: FDA-Public Use
  Company Number: None

PATIENT
  Age: 65 Year
  Sex: Male
  Weight: 86.2 kg

DRUGS (2)
  1. LISINOPRIL [Suspect]
     Dosage: 5 MG, EVERY DAY, PO
     Route: 048
     Dates: start: 20120423
  2. SULFAMETHOXAZOLE AND TRIMETHOPRIM [Suspect]
     Dosage: 1 MG, EVERY DAY, PO
     Route: 048
     Dates: start: 20120316, end: 20120724

REACTIONS (4)
  - RENAL FAILURE ACUTE [None]
  - HEPATIC ENZYME INCREASED [None]
  - HYPERKALAEMIA [None]
  - INTERNATIONAL NORMALISED RATIO ABNORMAL [None]
